FAERS Safety Report 10425765 (Version 1)
Quarter: 2014Q3

REPORT INFORMATION
  Report Type: Spontaneous
  Country: CH (occurrence: CH)
  Receive Date: 20140903
  Receipt Date: 20140903
  Transmission Date: 20150326
  Serious: Yes (Other)
  Sender: FDA-Public Use
  Company Number: CH-B.I. PHARMACEUTICALS,INC./RIDGEFIELD-2014-BI-39858SI

PATIENT
  Age: 61 Year
  Sex: Female
  Weight: 75 kg

DRUGS (4)
  1. TRESIBA [Suspect]
     Active Substance: INSULIN DEGLUDEC
     Indication: TYPE 2 DIABETES MELLITUS
     Dosage: 14 U
     Route: 058
     Dates: start: 20140321, end: 20140713
  2. METFORMIN [Concomitant]
     Active Substance: METFORMIN HYDROCHLORIDE
     Indication: TYPE 2 DIABETES MELLITUS
     Dosage: 1000 MG
     Route: 048
  3. CATAPRESAN [Suspect]
     Active Substance: CLONIDINE
     Indication: HYPERTENSION
     Dosage: 150 MCG
     Route: 048
  4. APROVEL [Suspect]
     Active Substance: IRBESARTAN
     Indication: HYPERTENSION
     Dosage: 150 MG
     Route: 048

REACTIONS (3)
  - Palpitations [Recovered/Resolved]
  - Arrhythmia [Recovered/Resolved]
  - Systolic hypertension [Recovered/Resolved]

NARRATIVE: CASE EVENT DATE: 20140713
